FAERS Safety Report 5882565-6 (Version None)
Quarter: 2008Q3

REPORT INFORMATION
  Report Type: 
  Country: None (occurrence: None)
  Receive Date: 20080913
  Receipt Date: 20080807
  Transmission Date: 20090109
  Serious: No
  Sender: FDA-Public Use
  Company Number: US-ABBOTT-08P-163-0469517-00

PATIENT
  Sex: Female
  Weight: 99.88 kg

DRUGS (12)
  1. HUMIRA [Suspect]
     Indication: RHEUMATOID ARTHRITIS
     Route: 058
     Dates: start: 20080717
  2. PROPAFENONE HYDROCHLORIDE [Concomitant]
     Indication: DRUG USE FOR UNKNOWN INDICATION
     Route: 048
  3. ROPINIROLE HYDROCHLORIDE [Concomitant]
     Indication: DRUG USE FOR UNKNOWN INDICATION
     Dosage: QPM
     Route: 048
  4. BISOPROLOL FUMARATE AND HYDROCHLOROTHIAZIDE [Concomitant]
     Indication: DRUG USE FOR UNKNOWN INDICATION
     Route: 048
  5. TRAMADOL HCL [Concomitant]
     Indication: PAIN
     Route: 048
  6. LANSOPRAZOLE [Concomitant]
     Indication: DRUG USE FOR UNKNOWN INDICATION
     Route: 048
  7. ESCITALOPRAM OXALATE [Concomitant]
     Indication: DRUG USE FOR UNKNOWN INDICATION
     Route: 048
  8. CLONAZEPAM [Concomitant]
     Indication: NERVOUSNESS
     Dosage: 1/2-2 TABS BID AND 2 TABS DAILY
  9. QUETIAPINE FUMARATE [Concomitant]
     Indication: DRUG USE FOR UNKNOWN INDICATION
     Dosage: QPM
     Route: 048
  10. CLONIDINE [Concomitant]
     Indication: DRUG USE FOR UNKNOWN INDICATION
     Route: 048
  11. ZOLPIDEM TARTRATE [Concomitant]
     Indication: INSOMNIA
     Route: 048
  12. LORTAB [Concomitant]
     Indication: PAIN
     Route: 048

REACTIONS (2)
  - OVERDOSE [None]
  - UNDERDOSE [None]
